FAERS Safety Report 13639608 (Version 1)
Quarter: 2017Q2

REPORT INFORMATION
  Report Type: Spontaneous
  Country: US (occurrence: US)
  Receive Date: 20170609
  Receipt Date: 20170609
  Transmission Date: 20170830
  Serious: No
  Sender: FDA-Public Use
  Company Number: US-ROCHE-727745

PATIENT
  Sex: Male

DRUGS (2)
  1. KLONOPIN [Suspect]
     Active Substance: CLONAZEPAM
     Dosage: DOSE TITRATED OFF OF 1 MG
     Route: 065
     Dates: start: 20100406, end: 20100706
  2. KLONOPIN [Suspect]
     Active Substance: CLONAZEPAM
     Indication: ANXIETY
     Route: 065

REACTIONS (6)
  - Anxiety [Unknown]
  - Muscle spasms [Unknown]
  - Palpitations [Unknown]
  - Abnormal dreams [Unknown]
  - Paraesthesia [Not Recovered/Not Resolved]
  - Epinephrine increased [Unknown]
